FAERS Safety Report 21044117 (Version 1)
Quarter: 2022Q3

REPORT INFORMATION
  Report Type: Report from Study
  Country: AU (occurrence: AU)
  Receive Date: 20220705
  Receipt Date: 20220705
  Transmission Date: 20221026
  Serious: Yes (Other)
  Sender: FDA-Public Use
  Company Number: AU-ABBVIE-22K-008-4451657-00

PATIENT
  Sex: Female
  Weight: 49 kg

DRUGS (2)
  1. CARBIDOPA\LEVODOPA [Suspect]
     Active Substance: CARBIDOPA\LEVODOPA
     Indication: Parkinson^s disease
     Dosage: MORNING DOSE 12.5 ML, CONTINUES RATE 2.8 ML EXTRA DOSE 1.0ML, 100ML GEL CASSETTE
     Route: 050
     Dates: start: 20210422
  2. CARBIDOPA\LEVODOPA [Suspect]
     Active Substance: CARBIDOPA\LEVODOPA

REACTIONS (8)
  - Seizure [Unknown]
  - Eye movement disorder [Unknown]
  - Postictal state [Unknown]
  - Mobility decreased [Unknown]
  - Weight decreased [Unknown]
  - Asthenia [Unknown]
  - Bradykinesia [Unknown]
  - Dyskinesia [Unknown]

NARRATIVE: CASE EVENT DATE: 20220101
